FAERS Safety Report 5780062-X (Version None)
Quarter: 2008Q2

REPORT INFORMATION
  Report Type: 
  Country: None (occurrence: None)
  Receive Date: 20080620
  Receipt Date: 20080610
  Transmission Date: 20081010
  Serious: Yes (Other)
  Sender: FDA-Public Use
  Company Number: IT-AMGEN-UK286146

PATIENT
  Sex: Female

DRUGS (1)
  1. NEULASTA [Suspect]
     Indication: DRUG USE FOR UNKNOWN INDICATION
     Dates: start: 20080327, end: 20080410

REACTIONS (4)
  - ANAPHYLACTIC SHOCK [None]
  - INJECTION SITE INDURATION [None]
  - SUFFOCATION FEELING [None]
  - URTICARIA [None]
